FAERS Safety Report 9054246 (Version 2)
Quarter: 2013Q1

REPORT INFORMATION
  Report Type: Report from Study
  Country: AR (occurrence: AR)
  Receive Date: 20130208
  Receipt Date: 20130214
  Transmission Date: 20140127
  Serious: Yes (Other)
  Sender: FDA-Public Use
  Company Number: AR-VIIV HEALTHCARE LIMITED-A1011017A

PATIENT
  Age: 35 Year
  Sex: Female

DRUGS (2)
  1. LAMIVUDINE + ZIDOVUDINE [Suspect]
     Indication: ANTIVIRAL TREATMENT
     Dosage: 2TAB PER DAY
     Route: 048
  2. EFAVIRENZ [Suspect]
     Indication: ANTIVIRAL TREATMENT
     Dosage: 600MG PER DAY
     Route: 048

REACTIONS (3)
  - Abortion spontaneous [Unknown]
  - Hypothyroidism [Unknown]
  - Exposure during pregnancy [Unknown]
